FAERS Safety Report 15226299 (Version 1)
Quarter: 2018Q3

REPORT INFORMATION
  Report Type: Spontaneous
  Country: GB (occurrence: GB)
  Receive Date: 20180801
  Receipt Date: 20180801
  Transmission Date: 20181010
  Serious: Yes (Hospitalization, Disabling, Other)
  Sender: FDA-Public Use
  Company Number: GB-DRREDDYS-GER/UKI/18/0102493

PATIENT
  Age: 72 Year
  Sex: Male
  Weight: 68 kg

DRUGS (5)
  1. TERBINAFINE. [Suspect]
     Active Substance: TERBINAFINE
     Indication: RASH
     Dates: start: 20161025, end: 20161104
  2. DAKTACORT [Concomitant]
     Active Substance: HYDROCORTISONE\MICONAZOLE NITRATE
     Indication: RASH
     Route: 061
     Dates: start: 20161014
  3. KETOCONAZOLE. [Concomitant]
     Active Substance: KETOCONAZOLE
     Indication: RASH
     Route: 061
     Dates: start: 20161006
  4. RAMIPRIL. [Concomitant]
     Active Substance: RAMIPRIL
     Indication: HYPERTENSION
     Route: 048
     Dates: start: 20150505
  5. AMLODIPINE [Concomitant]
     Active Substance: AMLODIPINE BESYLATE
     Indication: HYPERTENSION
     Route: 048
     Dates: start: 20150518

REACTIONS (27)
  - Headache [Not Recovered/Not Resolved]
  - Asthenia [Not Recovered/Not Resolved]
  - Muscular weakness [Not Recovered/Not Resolved]
  - Joint swelling [Not Recovered/Not Resolved]
  - Peripheral swelling [Not Recovered/Not Resolved]
  - Vitamin E deficiency [Unknown]
  - Eye pain [Not Recovered/Not Resolved]
  - Lethargy [Unknown]
  - Ageusia [Not Recovered/Not Resolved]
  - Muscle spasms [Not Recovered/Not Resolved]
  - Nausea [Unknown]
  - Yellow skin [Not Recovered/Not Resolved]
  - Vitamin D deficiency [Not Recovered/Not Resolved]
  - Arthralgia [Not Recovered/Not Resolved]
  - Impetigo [Not Recovered/Not Resolved]
  - Immune system disorder [Not Recovered/Not Resolved]
  - Arthritis [Not Recovered/Not Resolved]
  - Joint noise [Not Recovered/Not Resolved]
  - Musculoskeletal stiffness [Not Recovered/Not Resolved]
  - Fatigue [Not Recovered/Not Resolved]
  - Vomiting [Not Recovered/Not Resolved]
  - Skin infection [Not Recovered/Not Resolved]
  - Faeces pale [Not Recovered/Not Resolved]
  - Myelitis [Not Recovered/Not Resolved]
  - Photophobia [Not Recovered/Not Resolved]
  - Vision blurred [Not Recovered/Not Resolved]
  - Periarthritis [Unknown]

NARRATIVE: CASE EVENT DATE: 20170425
